FAERS Safety Report 18527765 (Version 1)
Quarter: 2020Q4

REPORT INFORMATION
  Report Type: Spontaneous
  Country: US (occurrence: US)
  Receive Date: 20201120
  Receipt Date: 20201120
  Transmission Date: 20210114
  Serious: Yes (Other)
  Sender: FDA-Public Use
  Company Number: US-009507513-2011USA011481

PATIENT
  Age: 52 Year
  Sex: Female
  Weight: 73 kg

DRUGS (4)
  1. ZOLOFT [Suspect]
     Active Substance: SERTRALINE HYDROCHLORIDE
     Dosage: UNK
  2. HYDROCHLOROTHIAZIDE. [Concomitant]
     Active Substance: HYDROCHLOROTHIAZIDE
     Dosage: 25 MG, DAILY
  3. PRINIVIL [Suspect]
     Active Substance: LISINOPRIL
     Dosage: UNK
  4. EFFEXOR [Concomitant]
     Active Substance: VENLAFAXINE HYDROCHLORIDE
     Dosage: 37.5 MG, DAILY

REACTIONS (2)
  - Angioedema [Unknown]
  - Pruritus [Unknown]
